FAERS Safety Report 5205751-7 (Version None)
Quarter: 2007Q1

REPORT INFORMATION
  Report Type: 
  Country: None (occurrence: None)
  Receive Date: 20070111
  Receipt Date: 20070103
  Transmission Date: 20070707
  Serious: Yes (Death, Disabling)
  Sender: FDA-Public Use
  Company Number: AR-ROCHE-457976

PATIENT
  Age: 51 Year
  Sex: Male
  Weight: 64.5 kg

DRUGS (5)
  1. MYCOPHENOLATE MOFETIL [Suspect]
     Route: 048
     Dates: start: 20010720, end: 20060721
  2. MYCOPHENOLATE MOFETIL [Suspect]
     Route: 048
     Dates: start: 20060721, end: 20060905
  3. CYCLOSPORINE [Concomitant]
     Dates: start: 20051013
  4. PREDNISONE TAB [Concomitant]
     Dates: start: 20050822, end: 20060727
  5. ALFA-METILDOPA [Concomitant]
     Dates: start: 20060721, end: 20060801

REACTIONS (12)
  - CANDIDURIA [None]
  - CITROBACTER INFECTION [None]
  - CULTURE POSITIVE [None]
  - HAEMODIALYSIS [None]
  - HIATUS HERNIA [None]
  - KLEBSIELLA INFECTION [None]
  - OESOPHAGITIS [None]
  - PANCREATIC ENLARGEMENT [None]
  - PANCREATIC PSEUDOCYST [None]
  - PANCREATITIS ACUTE [None]
  - RENAL TUBULAR NECROSIS [None]
  - TRANSPLANT REJECTION [None]
